FAERS Safety Report 8380462-8 (Version None)
Quarter: 2012Q2

REPORT INFORMATION
  Report Type: 
  Country: None (occurrence: None)
  Receive Date: 20120523
  Receipt Date: 20120515
  Transmission Date: 20120825
  Serious: Yes (Other)
  Sender: FDA-Public Use
  Company Number: US-GLAXOSMITHKLINE-A0978477A

PATIENT
  Sex: Male

DRUGS (11)
  1. ADVAIR DISKUS 100/50 [Suspect]
     Indication: CHRONIC OBSTRUCTIVE PULMONARY DISEASE
     Route: 055
  2. WELCHOL [Suspect]
     Indication: GASTROINTESTINAL DISORDER
     Dosage: 625MG UNKNOWN
     Route: 065
  3. COUMADIN [Suspect]
     Indication: CARDIAC DISORDER
     Dosage: 5MG UNKNOWN
     Route: 065
  4. DIGOXIN [Suspect]
     Indication: CARDIAC DISORDER
     Dosage: .125MG UNKNOWN
     Route: 065
  5. NITROSTAT [Suspect]
     Indication: CARDIAC DISORDER
     Dosage: .4MG UNKNOWN
     Route: 065
  6. TOPROL-XL [Suspect]
     Indication: CARDIAC DISORDER
     Dosage: 100MG UNKNOWN
  7. TOVIAZ [Suspect]
     Indication: BLADDER DISORDER
     Dosage: 8MG UNKNOWN
     Route: 065
  8. NEXIUM [Suspect]
     Indication: GASTROOESOPHAGEAL REFLUX DISEASE
     Dosage: 40MG UNKNOWN
     Route: 065
  9. SPIRIVA [Suspect]
     Indication: CHRONIC OBSTRUCTIVE PULMONARY DISEASE
     Route: 065
  10. VERAPAMIL [Suspect]
     Indication: CARDIAC DISORDER
     Dosage: 360MG UNKNOWN
     Route: 065
  11. LASIX [Suspect]
     Indication: CARDIAC DISORDER
     Dosage: 40MG UNKNOWN
     Route: 065

REACTIONS (5)
  - GENERAL PHYSICAL HEALTH DETERIORATION [None]
  - MULTI-ORGAN FAILURE [None]
  - CARDIAC DISORDER [None]
  - MALAISE [None]
  - IMMOBILE [None]
